FAERS Safety Report 17028562 (Version 1)
Quarter: 2019Q4

REPORT INFORMATION
  Report Type: Report from Study
  Country: None (occurrence: US)
  Receive Date: 20191113
  Receipt Date: 20191113
  Transmission Date: 20200122
  Serious: Yes (Other)
  Sender: FDA-Public Use
  Company Number: US-ABBVIE-19K-163-2998898-00

PATIENT
  Sex: Female
  Weight: 79.45 kg

DRUGS (1)
  1. HUMIRA [Suspect]
     Active Substance: ADALIMUMAB
     Indication: RHEUMATOID ARTHRITIS
     Route: 058
     Dates: start: 2014, end: 2019

REACTIONS (6)
  - Cholecystitis infective [Unknown]
  - Pancreatitis [Unknown]
  - Hepatitis [Unknown]
  - Bile duct obstruction [Unknown]
  - Feeding disorder [Unknown]
  - Procedural vomiting [Unknown]

NARRATIVE: CASE EVENT DATE: 2019
